FAERS Safety Report 4448642-1 (Version None)
Quarter: 2004Q3

REPORT INFORMATION
  Report Type: 
  Country: None (occurrence: None)
  Receive Date: 20040730
  Receipt Date: 20031202
  Transmission Date: 20050211
  Serious: Yes (Hospitalization)
  Sender: FDA-Public Use
  Company Number: 2003-12-0519

PATIENT
  Age: 62 Year
  Sex: Male
  Weight: 56.6996 kg

DRUGS (1)
  1. INTRON A [Suspect]
     Indication: BLADDER CANCER
     Dosage: 50 MU INTRAVESICAL
     Route: 043
     Dates: start: 20031111, end: 20040113

REACTIONS (3)
  - PNEUMONIA [None]
  - PYREXIA [None]
  - URINARY TRACT INFECTION [None]
